FAERS Safety Report 9770095 (Version 2)
Quarter: 2013Q4

REPORT INFORMATION
  Report Type: Spontaneous
  Country: US (occurrence: US)
  Receive Date: 20131218
  Receipt Date: 20131218
  Transmission Date: 20140711
  Serious: No
  Sender: FDA-Public Use
  Company Number: US-VERTEX PHARMACEUTICALS INC-AE-2011-000848

PATIENT
  Age: 50 Year
  Sex: Male
  Weight: 80.91 kg

DRUGS (8)
  1. INCIVEK [Suspect]
     Indication: HEPATITIS C
     Route: 048
     Dates: start: 20110708
  2. PEGASYS [Concomitant]
     Indication: HEPATITIS C
     Route: 058
     Dates: start: 20110413
  3. RIBASPHERE [Concomitant]
     Indication: HEPATITIS C
     Route: 048
     Dates: start: 20110413
  4. PROAIR HFA [Concomitant]
     Indication: CHRONIC OBSTRUCTIVE PULMONARY DISEASE
  5. ADVAIR [Concomitant]
     Indication: CHRONIC OBSTRUCTIVE PULMONARY DISEASE
  6. AMITRIPTYLINE [Concomitant]
     Indication: INSOMNIA
     Route: 048
  7. OMEPRAZOLE [Concomitant]
     Indication: BARRETT^S OESOPHAGUS
     Route: 048
  8. PROMETHAZINE [Concomitant]
     Indication: NAUSEA
     Route: 048

REACTIONS (6)
  - Accidental overdose [Recovered/Resolved]
  - Swollen tongue [Recovered/Resolved]
  - Dry mouth [Recovered/Resolved]
  - Dry skin [Unknown]
  - Blister [Recovered/Resolved]
  - Pruritus [Not Recovered/Not Resolved]
